FAERS Safety Report 15659067 (Version 1)
Quarter: 2018Q4

REPORT INFORMATION
  Report Type: Report from Study
  Country: US (occurrence: US)
  Receive Date: 20181127
  Receipt Date: 20181127
  Transmission Date: 20190205
  Serious: Yes (Life-Threatening, Hospitalization, Other)
  Sender: FDA-Public Use
  Company Number: US-SA-2018SA318345

PATIENT
  Age: 39 Year
  Sex: Male

DRUGS (3)
  1. INSULIN GLULISINE [Suspect]
     Active Substance: INSULIN GLULISINE
     Indication: TYPE 1 DIABETES MELLITUS
     Dosage: 12 U, TID
     Route: 065
  2. JARDIANCE [Concomitant]
     Active Substance: EMPAGLIFLOZIN
     Dosage: UNK UNK, UNK
     Route: 065
  3. INSULIN GLARGINE [Suspect]
     Active Substance: INSULIN GLARGINE
     Indication: TYPE 1 DIABETES MELLITUS
     Dosage: 60 U, QD
     Route: 058

REACTIONS (10)
  - Knee operation [Unknown]
  - Cardiac failure [Recovered/Resolved]
  - Glycosylated haemoglobin increased [Not Recovered/Not Resolved]
  - Pancreatitis [Recovered/Resolved]
  - Psoriatic arthropathy [Recovered/Resolved]
  - Gait inability [Recovered/Resolved]
  - Diabetic ketoacidosis [Recovered/Resolved]
  - Knee arthroplasty [Recovered/Resolved]
  - Psoriasis [Recovered/Resolved]
  - Joint swelling [Recovered/Resolved]

NARRATIVE: CASE EVENT DATE: 201711
